FAERS Safety Report 6980005-7 (Version None)
Quarter: 2010Q3

REPORT INFORMATION
  Report Type: 
  Country: None (occurrence: None)
  Receive Date: 20100914
  Receipt Date: 20100902
  Transmission Date: 20110219
  Serious: Yes (Other)
  Sender: FDA-Public Use
  Company Number: US-PFIZER INC-2010111762

PATIENT

DRUGS (1)
  1. TIKOSYN [Suspect]

REACTIONS (2)
  - CONVULSION [None]
  - TORSADE DE POINTES [None]
